FAERS Safety Report 5367665-1 (Version None)
Quarter: 2007Q2

REPORT INFORMATION
  Report Type: 
  Country: None (occurrence: None)
  Receive Date: 20070622
  Receipt Date: 20070222
  Transmission Date: 20071010
  Serious: No
  Sender: FDA-Public Use
  Company Number: US-ASTRAZENECA-2007UW03416

PATIENT
  Age: 2 Year
  Sex: Female
  Weight: 14.1 kg

DRUGS (3)
  1. PULMICORT [Suspect]
     Indication: UPPER RESPIRATORY TRACT INFECTION
     Route: 055
     Dates: start: 20070219
  2. PULMICORT [Suspect]
     Indication: ASTHMA
     Route: 055
     Dates: start: 20070219
  3. ACCUNEB [Concomitant]

REACTIONS (2)
  - LABELLED DRUG-DRUG INTERACTION MEDICATION ERROR [None]
  - PSYCHOMOTOR HYPERACTIVITY [None]
